FAERS Safety Report 22353092 (Version 1)
Quarter: 2023Q2

REPORT INFORMATION
  Report Type: Spontaneous
  Country: CN (occurrence: CN)
  Receive Date: 20230523
  Receipt Date: 20230523
  Transmission Date: 20230722
  Serious: Yes (Life-Threatening, Hospitalization)
  Sender: FDA-Public Use
  Company Number: CN-BEIGENE-BGN-2023-004562

PATIENT

DRUGS (6)
  1. BRUKINSA [Suspect]
     Active Substance: ZANUBRUTINIB
     Indication: Diffuse large B-cell lymphoma
     Dosage: 160 MILLIGRAM, BID, D1-21
     Route: 048
     Dates: start: 20230508
  2. RITUXIMAB [Suspect]
     Active Substance: RITUXIMAB
     Indication: Diffuse large B-cell lymphoma
     Dosage: 0.1 GRAM D1
     Route: 041
     Dates: start: 20230508
  3. RITUXIMAB [Suspect]
     Active Substance: RITUXIMAB
     Dosage: 0.5 GRAM D1
     Route: 041
     Dates: start: 20230508
  4. METHOTREXATE [Suspect]
     Active Substance: METHOTREXATE
     Indication: Diffuse large B-cell lymphoma
     Dosage: 0.8 GRAM
     Route: 041
     Dates: start: 20230510
  5. METHOTREXATE [Suspect]
     Active Substance: METHOTREXATE
     Dosage: 5 GRAM
     Route: 041
     Dates: start: 20230510
  6. CYTARABINE [Suspect]
     Active Substance: CYTARABINE
     Indication: Diffuse large B-cell lymphoma
     Dosage: 3000 MILLIGRAM, Q12H, D2-3
     Route: 041
     Dates: start: 20230510

REACTIONS (2)
  - Myelosuppression [Recovering/Resolving]
  - Off label use [Unknown]

NARRATIVE: CASE EVENT DATE: 20230508
